FAERS Safety Report 7492831-9 (Version None)
Quarter: 2011Q2

REPORT INFORMATION
  Report Type: 
  Country: None (occurrence: None)
  Receive Date: 20110520
  Receipt Date: 20110517
  Transmission Date: 20111010
  Serious: Yes (Other)
  Sender: FDA-Public Use
  Company Number: US-BRISTOL-MYERS SQUIBB COMPANY-15751563

PATIENT
  Age: 73 Year
  Sex: Male
  Weight: 77 kg

DRUGS (8)
  1. PLAVIX [Concomitant]
     Dosage: 1DF=1TAB
  2. ALLOPURINOL [Concomitant]
     Dosage: 1DF=11/2 TAB
  3. FUROSEMIDE [Concomitant]
  4. CARVEDILOL [Concomitant]
  5. COUMADIN [Suspect]
  6. LOSARTAN POTASSIUM [Concomitant]
  7. FOLIC ACID [Concomitant]
  8. LIPITOR [Concomitant]

REACTIONS (1)
  - BLOOD GLUCOSE DECREASED [None]
